FAERS Safety Report 7134972-1 (Version None)
Quarter: 2010Q4

REPORT INFORMATION
  Report Type: 
  Country: None (occurrence: None)
  Receive Date: 20101203
  Receipt Date: 20101125
  Transmission Date: 20110411
  Serious: Yes (Hospitalization)
  Sender: FDA-Public Use
  Company Number: CHNY2010GB00530

PATIENT
  Age: 19 Year
  Sex: Female

DRUGS (3)
  1. PARACETAMOL (NCH) [Suspect]
     Route: 048
  2. DICLOFENAC [Suspect]
     Route: 048
  3. CODEINE [Suspect]
     Route: 048

REACTIONS (1)
  - MULTIPLE DRUG OVERDOSE [None]
